FAERS Safety Report 6686134-X (Version None)
Quarter: 2010Q2

REPORT INFORMATION
  Report Type: 
  Country: None (occurrence: None)
  Receive Date: 20100419
  Receipt Date: 20100311
  Transmission Date: 20101027
  Serious: Yes (Other)
  Sender: FDA-Public Use
  Company Number: PHHY2010US03055

PATIENT
  Sex: Female
  Weight: 86.6 kg

DRUGS (26)
  1. XOLAIR [Suspect]
     Indication: ASTHMA
     Dosage: 375 MG, BIW
     Route: 058
     Dates: start: 20080720
  2. RITALIN [Suspect]
  3. THYROID TAB [Concomitant]
  4. PROGESTERONE [Concomitant]
  5. ESTROGEN NOS [Concomitant]
  6. TESTOSTERONE [Concomitant]
  7. ALLEGRA [Concomitant]
  8. PROZAC [Concomitant]
  9. NEXIUM [Concomitant]
  10. SIMVASTATIN [Concomitant]
  11. NEURONTIN [Concomitant]
  12. FEXOFENADINE [Concomitant]
  13. ZYFLO [Concomitant]
  14. SYMBICORT [Concomitant]
  15. ASTELIN [Concomitant]
  16. ATROVENT [Concomitant]
  17. MUCINEX [Concomitant]
  18. SANCTURA [Concomitant]
  19. THYROID TAB [Concomitant]
  20. PROVIGIL [Concomitant]
     Dosage: UNK
  21. ZOCOR [Concomitant]
  22. EVENING PRIMROSE OIL [Concomitant]
  23. GLUCOSAMINE [Concomitant]
  24. COQ10 [Concomitant]
  25. MIRALAX [Concomitant]
  26. REBIF [Concomitant]

REACTIONS (2)
  - DRUG INTERACTION [None]
  - FATIGUE [None]
